FAERS Safety Report 7817200-0 (Version None)
Quarter: 2011Q4

REPORT INFORMATION
  Report Type: 
  Country: None (occurrence: None)
  Receive Date: 20111017
  Receipt Date: 20111017
  Transmission Date: 20120403
  Serious: Yes (Disabling, Other)
  Sender: FDA-Public Use
  Company Number: None

PATIENT
  Age: 50 Year
  Sex: Male
  Weight: 90.718 kg

DRUGS (1)
  1. DEXAMETHASONE [Suspect]
     Indication: FACET JOINT SYNDROME
     Dates: start: 20091016, end: 20091016

REACTIONS (3)
  - ANXIETY [None]
  - PANIC ATTACK [None]
  - PRODUCT CONTAMINATION [None]
